FAERS Safety Report 8531658-3 (Version None)
Quarter: 2012Q3

REPORT INFORMATION
  Report Type: 
  Country: None (occurrence: None)
  Receive Date: 20120723
  Receipt Date: 20120719
  Transmission Date: 20120928
  Serious: Yes (Death, Life-Threatening)
  Sender: FDA-Public Use
  Company Number: TW-ASTRAZENECA-2012SE50624

PATIENT
  Age: 91 Year
  Sex: Male

DRUGS (1)
  1. ESOMEPROZILE [Suspect]
     Route: 048
     Dates: start: 20120610, end: 20120616

REACTIONS (3)
  - ALTERED STATE OF CONSCIOUSNESS [None]
  - HYPERCAPNIA [None]
  - SEPTIC SHOCK [None]
